FAERS Safety Report 9660407 (Version 2)
Quarter: 2013Q4

REPORT INFORMATION
  Report Type: Spontaneous
  Country: US (occurrence: US)
  Receive Date: 20131031
  Receipt Date: 20131031
  Transmission Date: 20140711
  Serious: Yes (Death, Other)
  Sender: FDA-Public Use
  Company Number: US-NAPPMUNDI-USA-2010-0045460

PATIENT
  Age: 24 Year
  Sex: Male
  Weight: 88.89 kg

DRUGS (7)
  1. OXYCODONE HYDROCHLORIDE (SIMILAR TO NDA 20-553) [Suspect]
     Indication: DRUG ABUSE
     Dosage: UNK
     Dates: start: 20100202
  2. MORPHINE SULFATE (SIMILAR TO NDA 19-516) [Suspect]
     Indication: PRODUCT USED FOR UNKNOWN INDICATION
  3. HEROIN [Suspect]
     Indication: SUBSTANCE ABUSE
     Dosage: UNK
     Dates: start: 20100202
  4. METHADONE [Suspect]
     Indication: DRUG ABUSE
     Dosage: UNK
     Dates: start: 20100202
  5. ALPRAZOLAM [Suspect]
     Indication: DRUG ABUSE
     Dosage: UNK
     Dates: start: 20100202
  6. OXYMORPHONE [Suspect]
     Indication: PRODUCT USED FOR UNKNOWN INDICATION
  7. CODEINE [Suspect]
     Indication: PRODUCT USED FOR UNKNOWN INDICATION

REACTIONS (4)
  - Overdose [Fatal]
  - Drug dependence [Unknown]
  - Substance abuse [Fatal]
  - Somnolence [Unknown]
